FAERS Safety Report 17093327 (Version 1)
Quarter: 2019Q4

REPORT INFORMATION
  Report Type: Spontaneous
  Country: GB (occurrence: GB)
  Receive Date: 20191129
  Receipt Date: 20191129
  Transmission Date: 20200122
  Serious: Yes (Hospitalization, Disabling)
  Sender: FDA-Public Use
  Company Number: GB-TEVA-2019-GB-1142134

PATIENT
  Age: 71 Year
  Sex: Male
  Weight: 80 kg

DRUGS (1)
  1. CISPLATIN. [Suspect]
     Active Substance: CISPLATIN
     Indication: OROPHARYNGEAL CANCER
     Dosage: 164 MG
     Route: 042
     Dates: start: 20181212, end: 20190123

REACTIONS (3)
  - Acute kidney injury [Unknown]
  - Hypophagia [Unknown]
  - Vomiting [Unknown]

NARRATIVE: CASE EVENT DATE: 20190120
